FAERS Safety Report 10023647 (Version 1)
Quarter: 2014Q1

REPORT INFORMATION
  Report Type: Spontaneous
  Country: US (occurrence: US)
  Receive Date: 20140320
  Receipt Date: 20140320
  Transmission Date: 20141002
  Serious: Yes (Hospitalization)
  Sender: FDA-Public Use
  Company Number: US-JNJFOC-20140308563

PATIENT
  Age: 58 Year
  Sex: Female

DRUGS (1)
  1. INVEGA SUSTENNA [Suspect]
     Indication: SCHIZOPHRENIA
     Dosage: THE PATIENT STARTED DRUG ON AN UNSPECIFIED YEAR ON 17-FEB
     Route: 030

REACTIONS (1)
  - Condition aggravated [Unknown]
